FAERS Safety Report 25834490 (Version 1)
Quarter: 2025Q3

REPORT INFORMATION
  Report Type: Spontaneous
  Country: CA (occurrence: CA)
  Receive Date: 20250923
  Receipt Date: 20250923
  Transmission Date: 20251021
  Serious: Yes (Other)
  Sender: CSL BEHRING
  Company Number: CA-BEH-2025219196

PATIENT
  Age: 77 Year
  Sex: Female

DRUGS (1)
  1. ALBUMIN HUMAN [Suspect]
     Active Substance: ALBUMIN HUMAN
     Route: 065
     Dates: start: 20250826, end: 20250826

REACTIONS (1)
  - Transfusion-associated dyspnoea [Recovered/Resolved]

NARRATIVE: CASE EVENT DATE: 20250826
